FAERS Safety Report 16755629 (Version 2)
Quarter: 2019Q3

REPORT INFORMATION
  Report Type: Spontaneous
  Country: DE (occurrence: DE)
  Receive Date: 20190829
  Receipt Date: 20190918
  Transmission Date: 20191005
  Serious: Yes (Life-Threatening, Hospitalization, Other)
  Sender: FDA-Public Use
  Company Number: DE-GILEAD-2019-0425597

PATIENT
  Age: 64 Year
  Sex: Female
  Weight: 88 kg

DRUGS (35)
  1. SACUBITRIL VALSARTAN SODIUM HYDRATE [Suspect]
     Active Substance: SACUBITRIL\VALSARTAN
     Indication: CARDIAC FAILURE CHRONIC
     Dosage: 48/52MG (24/26MG 2 IN 1 D)
     Route: 048
     Dates: start: 201905, end: 20190614
  2. DAPAGLIFLOZIN PROPANEDIOL MONOHYDRATE [Concomitant]
     Active Substance: DAPAGLIFLOZIN PROPANEDIOL
  3. TORASEMIDE [Concomitant]
     Active Substance: TORSEMIDE
  4. INSULIN GLARGINE [Concomitant]
     Active Substance: INSULIN GLARGINE
     Route: 058
  5. TORASEMIDE [Concomitant]
     Active Substance: TORSEMIDE
     Dates: start: 2018
  6. TORASEMIDE [Concomitant]
     Active Substance: TORSEMIDE
     Route: 048
  7. PREGABALIN. [Concomitant]
     Active Substance: PREGABALIN
     Route: 048
  8. INSULIN GLULISINE [Concomitant]
     Active Substance: INSULIN GLULISINE
  9. RANEXA [Suspect]
     Active Substance: RANOLAZINE
     Indication: PRODUCT USED FOR UNKNOWN INDICATION
     Route: 048
  10. METOCLOPRAMIDE HYDROCHLORIDE. [Concomitant]
     Active Substance: METOCLOPRAMIDE HYDROCHLORIDE
  11. PREGABALIN. [Concomitant]
     Active Substance: PREGABALIN
     Dates: start: 2018, end: 20190614
  12. SPIRONOLACTONE. [Concomitant]
     Active Substance: SPIRONOLACTONE
     Route: 048
  13. XIPAMIDE [Concomitant]
     Active Substance: XIPAMIDE
     Dates: start: 2018
  14. XIPAMIDE [Concomitant]
     Active Substance: XIPAMIDE
  15. INSULIN GLULISINE [Concomitant]
     Active Substance: INSULIN GLULISINE
     Dosage: 100 IU
  16. ACETYLSALICYLIC ACID [Concomitant]
     Active Substance: ASPIRIN
     Route: 048
  17. DAPAGLIFLOZIN PROPANEDIOL MONOHYDRATE [Concomitant]
     Active Substance: DAPAGLIFLOZIN PROPANEDIOL
     Dosage: 10 MG, QD
  18. ATORVASTATIN CALCIUM, EZETIMIBE [Concomitant]
  19. INSULIN GLARGINE [Concomitant]
     Active Substance: INSULIN GLARGINE
     Route: 058
  20. METOCLOPRAMIDE HYDROCHLORIDE. [Concomitant]
     Active Substance: METOCLOPRAMIDE HYDROCHLORIDE
  21. SACUBITRIL VALSARTAN SODIUM HYDRATE [Suspect]
     Active Substance: SACUBITRIL\VALSARTAN
     Indication: CARDIAC FAILURE
     Dosage: 98/102MG (49/51MG 2 IN 1 D)
     Route: 048
     Dates: end: 201904
  22. IVABRADINE HYDROCHLORIDE [Concomitant]
     Active Substance: IVABRADINE HYDROCHLORIDE
  23. XIPAMIDE [Concomitant]
     Active Substance: XIPAMIDE
     Route: 048
  24. MACROGOL 3350, POTASSIUM CHLORIDE, SODIUM BICARBONATE, SODIUM CHLORIDE [Concomitant]
     Route: 048
  25. BISOPROLOL [Concomitant]
     Active Substance: BISOPROLOL
     Route: 048
  26. SACUBITRIL VALSARTAN SODIUM HYDRATE [Suspect]
     Active Substance: SACUBITRIL\VALSARTAN
     Indication: ISCHAEMIC CARDIOMYOPATHY
     Dosage: 48/52MG (24/26MG 2 IN 1 D)
     Route: 048
  27. ASCORBIC ACID, GENTIANA LUTEA ROOT, PRIMULA SPP. FLOWER, RUMEX ACETOSA [Concomitant]
  28. METOCLOPRAMIDE HYDROCHLORIDE. [Concomitant]
     Active Substance: METOCLOPRAMIDE HYDROCHLORIDE
  29. RANITIDINE HYDROCHLORIDE. [Concomitant]
     Active Substance: RANITIDINE HYDROCHLORIDE
     Route: 005
  30. RANITIDINE HYDROCHLORIDE. [Concomitant]
     Active Substance: RANITIDINE HYDROCHLORIDE
     Route: 048
  31. COLECALCIFEROL [Concomitant]
     Active Substance: CHOLECALCIFEROL
     Dosage: 1000 IU
     Route: 048
  32. BISACODYL. [Concomitant]
     Active Substance: BISACODYL
     Route: 048
  33. BISOPROLOL FUMARATE. [Concomitant]
     Active Substance: BISOPROLOL FUMARATE
     Dosage: 2.5 MG
  34. INSULIN GLULISINE [Concomitant]
     Active Substance: INSULIN GLULISINE
     Route: 058
  35. TINZAPARIN SODIUM [Concomitant]
     Active Substance: TINZAPARIN SODIUM
     Route: 058

REACTIONS (31)
  - Staphylococcal infection [Unknown]
  - Lipids increased [Unknown]
  - Somnolence [Unknown]
  - Hypotension [Recovered/Resolved]
  - Renal failure [Recovered/Resolved]
  - General physical health deterioration [Unknown]
  - Azotaemia [Not Recovered/Not Resolved]
  - Klebsiella infection [Unknown]
  - Cystitis [Unknown]
  - Left ventricular dysfunction [Unknown]
  - Pancreatic steatosis [Unknown]
  - Blood pressure increased [Unknown]
  - Weight increased [Unknown]
  - Blood glucose fluctuation [Unknown]
  - Blood pressure decreased [Unknown]
  - Nausea [Recovered/Resolved]
  - Cardiovascular disorder [Recovered/Resolved]
  - Chronic kidney disease [Recovered/Resolved]
  - Hepatic steatosis [Unknown]
  - Blood calcium decreased [Unknown]
  - Sinus rhythm [Unknown]
  - Renal failure [Not Recovered/Not Resolved]
  - Vomiting [Recovered/Resolved]
  - Hypokinesia [Unknown]
  - Pleural effusion [Unknown]
  - Urinary tract infection [Unknown]
  - Dysuria [Unknown]
  - Diabetic nephropathy [Unknown]
  - Left ventricular dilatation [Unknown]
  - Oliguria [Recovered/Resolved]
  - Decreased appetite [Unknown]

NARRATIVE: CASE EVENT DATE: 201903
